FAERS Safety Report 9096066 (Version 1)
Quarter: 2013Q1

REPORT INFORMATION
  Report Type: Spontaneous
  Country: IT (occurrence: IT)
  Receive Date: 20130207
  Receipt Date: 20130207
  Transmission Date: 20140127
  Serious: Yes (Death)
  Sender: FDA-Public Use
  Company Number: IT-MYLANLABS-2013S1001979

PATIENT
  Age: 81 Year
  Sex: Male

DRUGS (2)
  1. TICLOPIDINE [Suspect]
     Indication: CEREBROVASCULAR ACCIDENT
     Route: 048
     Dates: start: 20110101, end: 20121227
  2. COUMADIN [Suspect]
     Indication: CEREBROVASCULAR ACCIDENT
     Route: 048
     Dates: start: 20110101, end: 20121227

REACTIONS (4)
  - Aphasia [Fatal]
  - Depressed level of consciousness [Fatal]
  - International normalised ratio increased [Unknown]
  - Haemoglobin decreased [Unknown]
